FAERS Safety Report 15433450 (Version 1)
Quarter: 2018Q3

REPORT INFORMATION
  Report Type: Spontaneous
  Country: US (occurrence: US)
  Receive Date: 20180921
  Receipt Date: 20180921
  Transmission Date: 20181010
  Serious: Yes (Hospitalization)
  Sender: FDA-Public Use
  Company Number: None

PATIENT
  Sex: Male

DRUGS (21)
  1. MYFORTIC [Suspect]
     Active Substance: MYCOPHENOLATE SODIUM
     Indication: RENAL TRANSPLANT
     Route: 048
     Dates: start: 20120824
  2. NOVOLOG [Concomitant]
     Active Substance: INSULIN ASPART
  3. ACIDOPHILUS [Concomitant]
     Active Substance: LACTOBACILLUS ACIDOPHILUS
  4. NIFEDIPINE. [Concomitant]
     Active Substance: NIFEDIPINE
  5. ACCU?CHEK [Concomitant]
  6. BD PEN NEEDL [Concomitant]
  7. CICLOPIROX. [Concomitant]
     Active Substance: CICLOPIROX
  8. LANTUS [Concomitant]
     Active Substance: INSULIN GLARGINE
  9. LIVALO [Concomitant]
     Active Substance: PITAVASTATIN CALCIUM
  10. ONETOUCH [Concomitant]
  11. PREDNISONE. [Concomitant]
     Active Substance: PREDNISONE
  12. TAMSULOSIN [Concomitant]
     Active Substance: TAMSULOSIN
  13. GABAPENTIN. [Concomitant]
     Active Substance: GABAPENTIN
  14. TORSEMIDE. [Concomitant]
     Active Substance: TORSEMIDE
  15. PANTOPRAZOLE [Concomitant]
     Active Substance: PANTOPRAZOLE
  16. PROGRAF [Concomitant]
     Active Substance: TACROLIMUS\TACROLIMUS ANHYDROUS
  17. TACROLIMUS. [Concomitant]
     Active Substance: TACROLIMUS
  18. POT CHLORIDE [Concomitant]
     Active Substance: POTASSIUM CHLORIDE
  19. CARVEDILOL. [Concomitant]
     Active Substance: CARVEDILOL
  20. FUROSEMIDE. [Concomitant]
     Active Substance: FUROSEMIDE
  21. METOLAZONE. [Concomitant]
     Active Substance: METOLAZONE

REACTIONS (1)
  - Pneumonia [None]
